FAERS Safety Report 4494159-8 (Version None)
Quarter: 2004Q4

REPORT INFORMATION
  Report Type: 
  Country: None (occurrence: None)
  Receive Date: 20041105
  Receipt Date: 20040930
  Transmission Date: 20050328
  Serious: Yes (Other)
  Sender: FDA-Public Use
  Company Number: PHNU2004DE03415

PATIENT
  Age: 55 Year
  Sex: Male
  Weight: 75 kg

DRUGS (1)
  1. LAMISIL [Suspect]
     Indication: ONYCHOMYCOSIS
     Dosage: 250 MG, QD
     Route: 048
     Dates: start: 20040819, end: 20041002

REACTIONS (2)
  - ANGINA PECTORIS [None]
  - CARDIAC DISORDER [None]
